FAERS Safety Report 9164217 (Version 1)
Quarter: 2013Q1

REPORT INFORMATION
  Report Type: Spontaneous
  Country: US (occurrence: US)
  Receive Date: 20130315
  Receipt Date: 20130315
  Transmission Date: 20140127
  Serious: No
  Sender: FDA-Public Use
  Company Number: US-BAYER-2013-032374

PATIENT
  Sex: Male
  Weight: 69.84 kg

DRUGS (1)
  1. BETASERON [Suspect]
     Indication: MULTIPLE SCLEROSIS
     Dosage: 0.25MG (1ML)
     Route: 058
     Dates: start: 2012

REACTIONS (5)
  - Amnesia [Unknown]
  - Memory impairment [Unknown]
  - Confusional state [Unknown]
  - Movement disorder [Unknown]
  - Coordination abnormal [Unknown]
